FAERS Safety Report 19106065 (Version 10)
Quarter: 2022Q2

REPORT INFORMATION
  Report Type: Report from Study
  Country: US (occurrence: US)
  Receive Date: 20210407
  Receipt Date: 20220620
  Transmission Date: 20220721
  Serious: Yes (Hospitalization, Other)
  Sender: FDA-Public Use
  Company Number: NVSC2021US077289

PATIENT
  Age: 70 Year
  Sex: Male
  Weight: 108.86 kg

DRUGS (5)
  1. TREPROSTINIL [Suspect]
     Active Substance: TREPROSTINIL
     Indication: Pulmonary arterial hypertension
     Dosage: 35 NG/KG/MIN, CONT
     Route: 042
     Dates: start: 20200706
  2. TREPROSTINIL [Suspect]
     Active Substance: TREPROSTINIL
     Dosage: 40NG/KG/MIN  CONT
     Route: 042
  3. TREPROSTINIL [Suspect]
     Active Substance: TREPROSTINIL
     Dosage: 40NG/KG/MIN  CONT
     Route: 042
  4. TREPROSTINIL [Suspect]
     Active Substance: TREPROSTINIL
     Dosage: 40NG/KG/MIN  CONT
     Route: 042
  5. OPSUMIT [Concomitant]
     Active Substance: MACITENTAN
     Indication: Product used for unknown indication
     Dosage: UNK
     Route: 065

REACTIONS (12)
  - Atrioventricular block [Unknown]
  - Femur fracture [Unknown]
  - Abdominal discomfort [Unknown]
  - Myalgia [Unknown]
  - Pain [Unknown]
  - Lower limb fracture [Unknown]
  - Drug hypersensitivity [Unknown]
  - COVID-19 [Unknown]
  - Headache [Unknown]
  - Gait disturbance [Unknown]
  - Seasonal allergy [Unknown]
  - Hypertension [Unknown]

NARRATIVE: CASE EVENT DATE: 20210506
